FAERS Safety Report 14931422 (Version 1)
Quarter: 2018Q2

REPORT INFORMATION
  Report Type: Spontaneous
  Country: FR (occurrence: FR)
  Receive Date: 20180524
  Receipt Date: 20180524
  Transmission Date: 20180711
  Serious: Yes (Other)
  Sender: FDA-Public Use
  Company Number: FR-009507513-1805FRA005480

PATIENT
  Age: 65 Year
  Sex: Female
  Weight: 45 kg

DRUGS (1)
  1. STROMECTOL [Suspect]
     Active Substance: IVERMECTIN
     Indication: FILARIASIS
     Dosage: 3 DF, 3 TABLETS IN A ROW
     Route: 048
     Dates: start: 2018

REACTIONS (3)
  - Abdominal pain upper [Unknown]
  - Incorrect dose administered [Unknown]
  - Helminthic infection [Unknown]

NARRATIVE: CASE EVENT DATE: 2018
